FAERS Safety Report 16007499 (Version 1)
Quarter: 2019Q1

REPORT INFORMATION
  Report Type: Spontaneous
  Country: US (occurrence: US)
  Receive Date: 20190226
  Receipt Date: 20190226
  Transmission Date: 20190418
  Serious: No
  Sender: FDA-Public Use
  Company Number: US-IGSA-SR10006801

PATIENT
  Sex: Male
  Weight: 96 kg

DRUGS (8)
  1. NIACIN. [Concomitant]
     Active Substance: NIACIN
     Dosage: UNK UNK, QD
  2. LASIX [Concomitant]
     Active Substance: FUROSEMIDE
  3. VITAMIN B12 [Concomitant]
     Active Substance: CYANOCOBALAMIN
     Dosage: UNK UNK, QD
  4. PROLASTIN-C [Suspect]
     Active Substance: .ALPHA.1-PROTEINASE INHIBITOR HUMAN
     Indication: ALPHA-1 ANTI-TRYPSIN DEFICIENCY
     Dosage: 11520 MG, Q.2WK.
     Route: 042
     Dates: start: 20141114
  5. NOVOLOG [Concomitant]
     Active Substance: INSULIN ASPART
  6. ALOE VERA [Concomitant]
     Active Substance: ALOE VERA LEAF
  7. ALDACTONE [Concomitant]
     Active Substance: SPIRONOLACTONE
  8. PROLASTIN-C [Suspect]
     Active Substance: .ALPHA.1-PROTEINASE INHIBITOR HUMAN
     Indication: EMPHYSEMA

REACTIONS (2)
  - Cough [Not Recovered/Not Resolved]
  - Panniculitis [Not Recovered/Not Resolved]
